FAERS Safety Report 18441641 (Version 2)
Quarter: 2020Q4

REPORT INFORMATION
  Report Type: Spontaneous
  Country: US (occurrence: US)
  Receive Date: 20201029
  Receipt Date: 20201029
  Transmission Date: 20210114
  Serious: Yes (Other)
  Sender: FDA-Public Use
  Company Number: US-JNJFOC-20201032365

PATIENT

DRUGS (1)
  1. LISTERINE TOTAL CARE [Suspect]
     Active Substance: SODIUM FLUORIDE
     Indication: DENTAL DISORDER PROPHYLAXIS
     Dosage: TOOK 10ML AND SWISHED IT IN MY MOUTH ONCE DAILY AT NIGHTTIME
     Route: 048
     Dates: start: 20201012

REACTIONS (2)
  - Inappropriate schedule of product administration [Unknown]
  - Coeliac disease [Unknown]

NARRATIVE: CASE EVENT DATE: 20201012
